FAERS Safety Report 11323539 (Version 1)
Quarter: 2015Q3

REPORT INFORMATION
  Report Type: Spontaneous
  Country: US (occurrence: None)
  Receive Date: 20150729
  Receipt Date: 20150729
  Transmission Date: 20151125
  Serious: Yes (Disabling)
  Sender: FDA-Public Use
  Company Number: None

PATIENT
  Age: 76 Month
  Sex: Female
  Weight: 58.97 kg

DRUGS (2)
  1. DOXYCYCLINE HYCLATE. [Suspect]
     Active Substance: DOXYCYCLINE HYCLATE
     Indication: ANIMAL BITE
     Dosage: 10  ONCE DAILY
     Dates: start: 20150507, end: 20150517
  2. TYLENOL [Concomitant]
     Active Substance: ACETAMINOPHEN

REACTIONS (3)
  - Pain [None]
  - Musculoskeletal disorder [None]
  - Motor dysfunction [None]

NARRATIVE: CASE EVENT DATE: 20150507
